FAERS Safety Report 24776595 (Version 1)
Quarter: 2024Q4

REPORT INFORMATION
  Report Type: Other
  Country: US (occurrence: US)
  Receive Date: 20241226
  Receipt Date: 20241226
  Transmission Date: 20250114
  Serious: Yes (Hospitalization)
  Sender: VISTAPHARM
  Company Number: US-Vista Pharmaceuticals Inc.-2167795

PATIENT
  Age: 59 Year
  Sex: Female

DRUGS (1)
  1. SULFAMETHOXAZOLE\TRIMETHOPRIM [Suspect]
     Active Substance: SULFAMETHOXAZOLE\TRIMETHOPRIM
     Indication: Streptococcal infection

REACTIONS (2)
  - Symmetrical drug-related intertriginous and flexural exanthema [Unknown]
  - Product use in unapproved indication [Unknown]
